FAERS Safety Report 24561906 (Version 2)
Quarter: 2025Q2

REPORT INFORMATION
  Report Type: Spontaneous
  Country: US (occurrence: US)
  Receive Date: 20241029
  Receipt Date: 20250523
  Transmission Date: 20250716
  Serious: No
  Sender: TETRAPHASE PHARMACEUTICALS
  Company Number: US-TETRAPHASE PHARMACEUTICALS, INC.-2023-INNO-US000071

PATIENT

DRUGS (1)
  1. XERAVA [Suspect]
     Active Substance: ERAVACYCLINE DIHYDROCHLORIDE
     Indication: Product used for unknown indication
     Route: 042

REACTIONS (1)
  - Infusion site extravasation [Unknown]
